FAERS Safety Report 6961007-3 (Version None)
Quarter: 2010Q3

REPORT INFORMATION
  Report Type: 
  Country: None (occurrence: None)
  Receive Date: 20100830
  Receipt Date: 20100816
  Transmission Date: 20110219
  Serious: Yes (Other)
  Sender: FDA-Public Use
  Company Number: 670385

PATIENT
  Age: 47 Year
  Sex: Female
  Weight: 68.18 kg

DRUGS (7)
  1. LEUCOVORIN CALCIUM [Suspect]
     Indication: RECTOSIGMOID CANCER
     Dosage: EVERY CYCLE
     Dates: start: 20100401, end: 20100806
  2. ELOXATIN [Suspect]
     Indication: RECTOSIGMOID CANCER
     Dosage: EVERY CYCLE
     Dates: start: 20100401, end: 20100806
  3. FLUOROURACIL [Suspect]
     Indication: RECTOSIGMOID CANCER
     Dosage: EVERY CYCLE
     Dates: start: 20100401, end: 20100806
  4. PAXIL [Concomitant]
  5. PEPCID [Concomitant]
  6. ONDANSETRON [Concomitant]
  7. DEXAMETHASONE [Concomitant]

REACTIONS (8)
  - FEELING HOT [None]
  - FLUSHING [None]
  - HEART RATE INCREASED [None]
  - HYPERHIDROSIS [None]
  - HYPERSENSITIVITY [None]
  - HYPERTENSION [None]
  - OXYGEN SATURATION DECREASED [None]
  - VOMITING [None]
